FAERS Safety Report 10754907 (Version 1)
Quarter: 2015Q1

REPORT INFORMATION
  Report Type: Spontaneous
  Country: US (occurrence: None)
  Receive Date: 20150130
  Receipt Date: 20150130
  Transmission Date: 20150721
  Serious: Yes (Life-Threatening, Hospitalization)
  Sender: FDA-Public Use
  Company Number: None

PATIENT
  Age: 22 Year
  Sex: Female
  Weight: 47.63 kg

DRUGS (1)
  1. NUVARING [Suspect]
     Active Substance: ETHINYL ESTRADIOL\ETONOGESTREL
     Indication: CONTRACEPTION
     Dosage: 1 RING EVERY 3 WEEKS VAGINAL
     Route: 067

REACTIONS (5)
  - Muscle spasms [None]
  - Pulmonary thrombosis [None]
  - Dysstasia [None]
  - Crying [None]
  - Back pain [None]

NARRATIVE: CASE EVENT DATE: 20150128
